FAERS Safety Report 25842468 (Version 1)
Quarter: 2025Q3

REPORT INFORMATION
  Report Type: Spontaneous
  Country: US (occurrence: US)
  Receive Date: 20250924
  Receipt Date: 20250924
  Transmission Date: 20251021
  Serious: No
  Sender: ABBVIE
  Company Number: US-ABBVIE-6464591

PATIENT

DRUGS (2)
  1. KYBELLA [Suspect]
     Active Substance: DEOXYCHOLIC ACID
     Indication: Fat tissue decreased
     Route: 058
     Dates: start: 20250625, end: 20250625
  2. KYBELLA [Suspect]
     Active Substance: DEOXYCHOLIC ACID
     Indication: Fat tissue decreased
     Route: 058
     Dates: start: 20250717, end: 20250717

REACTIONS (3)
  - Off label use of device [Unknown]
  - Hypoaesthesia [Unknown]
  - Pain [Unknown]

NARRATIVE: CASE EVENT DATE: 20250101
